FAERS Safety Report 25100044 (Version 1)
Quarter: 2025Q1

REPORT INFORMATION
  Report Type: Spontaneous
  Country: CN (occurrence: CN)
  Receive Date: 20250320
  Receipt Date: 20250320
  Transmission Date: 20250408
  Serious: Yes (Other)
  Sender: PFIZER
  Company Number: CN-PFIZER INC-PV202500031796

PATIENT
  Age: 45 Year
  Sex: Male
  Weight: 94 kg

DRUGS (2)
  1. SUTENT [Suspect]
     Active Substance: SUNITINIB MALATE
     Indication: Renal cancer
     Dosage: 50 MG, 1X/DAY
     Route: 048
     Dates: start: 20250221, end: 20250314
  2. SUTENT [Suspect]
     Active Substance: SUNITINIB MALATE
     Indication: Metastases to lung

REACTIONS (8)
  - Erythema [Not Recovered/Not Resolved]
  - Impetigo [Not Recovered/Not Resolved]
  - Decreased appetite [Unknown]
  - Gingival swelling [Unknown]
  - Toothache [Unknown]
  - Ageusia [Unknown]
  - Vision blurred [Unknown]
  - Listless [Unknown]

NARRATIVE: CASE EVENT DATE: 20250301
